FAERS Safety Report 9746091 (Version 2)
Quarter: 2013Q4

REPORT INFORMATION
  Report Type: Spontaneous
  Country: ES (occurrence: ES)
  Receive Date: 20131211
  Receipt Date: 20131211
  Transmission Date: 20140711
  Serious: No
  Sender: FDA-Public Use
  Company Number: ES-GILEAD-2009-0024534

PATIENT
  Age: 41 Year
  Sex: Male
  Weight: 72 kg

DRUGS (1)
  1. ATRIPLA [Suspect]
     Indication: HIV INFECTION
     Route: 048
     Dates: start: 20090610

REACTIONS (2)
  - Pyrexia [Recovered/Resolved]
  - Rash [Recovered/Resolved]
